FAERS Safety Report 23068807 (Version 2)
Quarter: 2023Q4

REPORT INFORMATION
  Report Type: Spontaneous
  Country: BE (occurrence: BE)
  Receive Date: 20231016
  Receipt Date: 20231030
  Transmission Date: 20240109
  Serious: Yes (Other)
  Sender: FDA-Public Use
  Company Number: BE-BAYER-2023A142009

PATIENT
  Age: 39 Year
  Sex: Female

DRUGS (2)
  1. BETAFERON [Suspect]
     Active Substance: INTERFERON BETA-1B
     Indication: Multiple sclerosis
     Route: 058
     Dates: start: 200907, end: 201605
  2. TECFIDERA [Concomitant]
     Active Substance: DIMETHYL FUMARATE
     Indication: Multiple sclerosis
     Dosage: UNK

REACTIONS (3)
  - Cutaneous contour deformity [Not Recovered/Not Resolved]
  - Injection site atrophy [None]
  - Injection site fibrosis [None]
